FAERS Safety Report 17034119 (Version 1)
Quarter: 2019Q4

REPORT INFORMATION
  Report Type: Spontaneous
  Country: US (occurrence: US)
  Receive Date: 20191114
  Receipt Date: 20191114
  Transmission Date: 20200122
  Serious: No
  Sender: FDA-Public Use
  Company Number: US-JNJFOC-20191110691

PATIENT
  Sex: Female
  Weight: 45.4 kg

DRUGS (1)
  1. ROGAINE [Suspect]
     Active Substance: MINOXIDIL
     Indication: ALOPECIA
     Dosage: THE SIZE OF THE CORTER
     Route: 061

REACTIONS (2)
  - Heart rate increased [Recovered/Resolved]
  - Incorrect dose administered [Unknown]
